FAERS Safety Report 15231804 (Version 2)
Quarter: 2018Q4

REPORT INFORMATION
  Report Type: Spontaneous
  Country: US (occurrence: US)
  Receive Date: 20180802
  Receipt Date: 20181009
  Transmission Date: 20190204
  Serious: No
  Sender: FDA-Public Use
  Company Number: US-GLAXOSMITHKLINE-US2018GSK137023

PATIENT
  Sex: Male
  Weight: 77.55 kg

DRUGS (1)
  1. ANORO ELLIPTA [Suspect]
     Active Substance: UMECLIDINIUM BROMIDE\VILANTEROL TRIFENATATE
     Indication: CHRONIC OBSTRUCTIVE PULMONARY DISEASE
     Dosage: UNK, 1D
     Route: 048
     Dates: start: 20180726, end: 20180803

REACTIONS (3)
  - Dyspnoea [Unknown]
  - Wheezing [Unknown]
  - Cough [Unknown]
